FAERS Safety Report 5187426-6 (Version None)
Quarter: 2006Q4

REPORT INFORMATION
  Report Type: 
  Country: None (occurrence: None)
  Receive Date: 20061220
  Receipt Date: 20060518
  Transmission Date: 20070319
  Serious: No
  Sender: FDA-Public Use
  Company Number: US-AMGEN-US180221

PATIENT
  Sex: Female

DRUGS (3)
  1. ENBREL [Suspect]
     Indication: RHEUMATOID ARTHRITIS
     Route: 058
     Dates: start: 20000101
  2. METHOTREXATE [Concomitant]
     Route: 048
  3. FORTEO [Concomitant]

REACTIONS (8)
  - ABASIA [None]
  - ASTHENIA [None]
  - CONCUSSION [None]
  - FALL [None]
  - JOINT INJURY [None]
  - OEDEMA PERIPHERAL [None]
  - SKELETAL INJURY [None]
  - SWELLING FACE [None]
